FAERS Safety Report 7978777 (Version 6)
Quarter: 2014Q2

REPORT INFORMATION
  Report Type: Report from Study
  Country: JP (occurrence: JP)
  Receive Date: 20110607
  Receipt Date: 20140603
  Transmission Date: 20141212
  Serious: Yes (Other)
  Sender: FDA-Public Use
  Company Number: PHHY2011JP45385

PATIENT
  Age: 73 Year
  Sex: Female

DRUGS (7)
  1. AMN107 [Suspect]
     Indication: CHRONIC MYELOID LEUKAEMIA
     Dosage: 800 MG DAILY
     Route: 048
     Dates: start: 20110121, end: 20110213
  2. AMN107 [Suspect]
     Dosage: 200 MG DAILY
     Route: 048
     Dates: start: 20110228, end: 20110314
  3. AMN107 [Suspect]
     Dosage: 400 MG DAILY
     Route: 048
     Dates: start: 20110315, end: 20110425
  4. AMN107 [Suspect]
     Dosage: 600 MG, DAILY
     Route: 048
     Dates: start: 20110426
  5. LIPITOR [Concomitant]
     Dosage: 5 MG, UNK
     Route: 048
     Dates: start: 20131217, end: 20131217
  6. BIOFERMIN [Concomitant]
     Dosage: 3 G, UNK
     Route: 048
     Dates: start: 20131216, end: 20131229
  7. CRESTOR [Concomitant]
     Dosage: 2.5 MG, UNK
     Route: 048
     Dates: start: 20140107, end: 20140216

REACTIONS (4)
  - Sinus tachycardia [Recovering/Resolving]
  - Dyspnoea [Recovering/Resolving]
  - Electrocardiogram ST segment depression [Recovering/Resolving]
  - Hypertension [Not Recovered/Not Resolved]
